FAERS Safety Report 8338026-8 (Version None)
Quarter: 2012Q2

REPORT INFORMATION
  Report Type: 
  Country: None (occurrence: None)
  Receive Date: 20120504
  Receipt Date: 20120427
  Transmission Date: 20120825
  Serious: Yes (Hospitalization, Other)
  Sender: FDA-Public Use
  Company Number: GB-ABBOTT-12P-167-0930111-00

PATIENT
  Age: 46 Year
  Sex: Female

DRUGS (4)
  1. HUMIRA [Suspect]
     Indication: PSORIASIS
     Route: 058
     Dates: start: 20120404, end: 20120418
  2. CAPASAL [Concomitant]
     Indication: PRODUCT USED FOR UNKNOWN INDICATION
  3. CLOBETASONE [Concomitant]
     Indication: PRODUCT USED FOR UNKNOWN INDICATION
  4. DEPO-PROVERA [Concomitant]
     Indication: PRODUCT USED FOR UNKNOWN INDICATION

REACTIONS (5)
  - RASH [None]
  - PRURITUS [None]
  - ERYTHEMA [None]
  - ERYSIPELAS [None]
  - CELLULITIS [None]
